FAERS Safety Report 6154282-9 (Version None)
Quarter: 2009Q2

REPORT INFORMATION
  Report Type: 
  Country: None (occurrence: None)
  Receive Date: 20090414
  Receipt Date: 20090414
  Transmission Date: 20091009
  Serious: Yes (Hospitalization)
  Sender: FDA-Public Use
  Company Number: PHHO2006IT04746

PATIENT
  Sex: Female
  Weight: 75 kg

DRUGS (5)
  1. CGS 20267 T30748+ [Suspect]
     Indication: BREAST CANCER
     Dosage: 2.5 MG, QD
     Route: 048
     Dates: start: 20020821
  2. TAMOXIFEN CITRATE [Suspect]
     Dosage: 20 MG, QD
  3. LOPRESSOR [Concomitant]
  4. SYSCOR [Concomitant]
     Indication: MYOCARDIAL ISCHAEMIA
  5. LOPID [Concomitant]
     Indication: HYPERCHOLESTEROLAEMIA

REACTIONS (8)
  - BIOPSY ENDOMETRIUM [None]
  - ENDOMETRIAL HYPERPLASIA [None]
  - ENDOMETRIAL HYPERTROPHY [None]
  - HYSTERECTOMY [None]
  - HYSTEROSCOPY [None]
  - OOPHORECTOMY [None]
  - UTERINE ENLARGEMENT [None]
  - VAGINAL PROLAPSE [None]
